FAERS Safety Report 9154073 (Version 2)
Quarter: 2013Q2

REPORT INFORMATION
  Report Type: Spontaneous
  Country: US (occurrence: US)
  Receive Date: 20130311
  Receipt Date: 20130408
  Transmission Date: 20140414
  Serious: No
  Sender: FDA-Public Use
  Company Number: US-PFIZER INC-2013078053

PATIENT
  Age: 77 Year
  Sex: Female

DRUGS (2)
  1. ADVIL [Suspect]
     Indication: SINUS DISORDER
     Dosage: UNK (THREE TABLETS IN THE MORNING AND THREE TABLETS IN THE EVENING ), 2X/DAY
     Route: 048
     Dates: start: 2013, end: 201302
  2. ADVIL [Suspect]
     Indication: HEADACHE

REACTIONS (1)
  - Malaise [Recovering/Resolving]
